FAERS Safety Report 14119877 (Version 1)
Quarter: 2017Q4

REPORT INFORMATION
  Report Type: Spontaneous
  Country: US (occurrence: None)
  Receive Date: 20171024
  Receipt Date: 20171024
  Transmission Date: 20180321
  Serious: No
  Sender: FDA-Public Use
  Company Number: None

PATIENT

DRUGS (2)
  1. MIRATAZPINE [Suspect]
     Active Substance: MIRTAZAPINE
     Dosage: INJECTABLE IM OR IV
     Route: 030
  2. PROCHLORPERAZINE 10MG/2ML [Suspect]
     Active Substance: PROCHLORPERAZINE
     Dosage: INJECTABLE DEEP IM OR IV
     Route: 030

REACTIONS (1)
  - Product packaging confusion [None]
